FAERS Safety Report 4510138-6 (Version None)
Quarter: 2004Q4

REPORT INFORMATION
  Report Type: 
  Country: None (occurrence: None)
  Receive Date: 20041119
  Receipt Date: 20041109
  Transmission Date: 20050328
  Serious: Yes (Hospitalization, Other)
  Sender: FDA-Public Use
  Company Number: DEU-2004-0001081

PATIENT
  Sex: Male

DRUGS (3)
  1. PALLADONE [Suspect]
     Indication: CANCER PAIN
     Dosage: 24 MG, BID ORAL
     Route: 048
  2. PALLADONE [Suspect]
     Indication: CANCER PAIN
     Dosage: PRN, ORAL
     Route: 048
  3. ANTINEOPLASTIC AGENTS [Concomitant]

REACTIONS (4)
  - ATRIAL FIBRILLATION [None]
  - BLOOD PRESSURE FLUCTUATION [None]
  - CARDIAC DISORDER [None]
  - CHEST PAIN [None]
